FAERS Safety Report 4887854-X (Version None)
Quarter: 2006Q1

REPORT INFORMATION
  Report Type: 
  Country: None (occurrence: None)
  Receive Date: 20060118
  Receipt Date: 20060103
  Transmission Date: 20060701
  Serious: Yes (Other)
  Sender: FDA-Public Use
  Company Number: 2005-0008904

PATIENT
  Age: 37 Year
  Sex: Female
  Weight: 75.0703 kg

DRUGS (3)
  1. EMTRICITABINE (EMTRICITABINE) [Suspect]
     Dosage: 200 MG, 1 IN 1 ONCE, ORAL
     Route: 048
     Dates: start: 20051002, end: 20051002
  2. TENOFOVIR DISOPROXIL FUMARATE (TENOFOVIR DISOPROXIL FUMARATE) [Suspect]
     Dosage: 300 MG, 1 IN 1 ONCE, ORAL
     Route: 048
     Dates: start: 20051002, end: 20051002
  3. EFAVIRENZ [Suspect]
     Dosage: 600 MG, 1 IN 1 ONCE, ORAL
     Route: 048
     Dates: start: 20051002, end: 20051002

REACTIONS (5)
  - ABORTION SPONTANEOUS [None]
  - DRUG EXPOSURE DURING PREGNANCY [None]
  - HYPOTENSION [None]
  - PREGNANCY [None]
  - TWIN PREGNANCY [None]
